FAERS Safety Report 4322339-0 (Version None)
Quarter: 2004Q1

REPORT INFORMATION
  Report Type: 
  Country: None (occurrence: None)
  Receive Date: 20040319
  Receipt Date: 20040309
  Transmission Date: 20041129
  Serious: Yes (Other)
  Sender: FDA-Public Use
  Company Number: 2004016689

PATIENT
  Age: 80 Year
  Sex: Male
  Weight: 70 kg

DRUGS (6)
  1. AMLODIPINE [Suspect]
     Indication: ILL-DEFINED DISORDER
     Dosage: 5 MG (DAILY), ORAL
     Route: 048
     Dates: start: 20040211, end: 20040211
  2. METFORMIN HCL [Concomitant]
  3. CANDESARTAN (CANDESARTAN) [Concomitant]
  4. ACETYLSALICYLIC ACID SRT [Concomitant]
  5. BENDROFLUMETHIAZIDE (BENDROFLUMETHIAZIDE) [Concomitant]
  6. SALBUTAMOL (SALBUTAMOL) [Concomitant]

REACTIONS (1)
  - WHEEZING [None]
